FAERS Safety Report 8609977-1 (Version None)
Quarter: 2012Q3

REPORT INFORMATION
  Report Type: 
  Country: None (occurrence: None)
  Receive Date: 20120822
  Receipt Date: 20120808
  Transmission Date: 20120928
  Serious: Yes (Hospitalization)
  Sender: FDA-Public Use
  Company Number: PT-MYLANLABS-2012S1016815

PATIENT
  Age: 19 Year
  Sex: Female

DRUGS (1)
  1. CYSTAGON [Suspect]
     Indication: CYSTINOSIS
     Route: 048

REACTIONS (1)
  - LUPUS NEPHRITIS [None]
